FAERS Safety Report 7657637-6 (Version None)
Quarter: 2011Q3

REPORT INFORMATION
  Report Type: 
  Country: None (occurrence: None)
  Receive Date: 20110804
  Receipt Date: 20110802
  Transmission Date: 20111222
  Serious: Yes (Death, Hospitalization, Other)
  Sender: FDA-Public Use
  Company Number: US-AMGEN GMBH-QUU424623

PATIENT
  Age: 67 Year
  Sex: Female
  Weight: 94.4 kg

DRUGS (11)
  1. ERGOCALCIFEROL [Concomitant]
  2. NPLATE [Suspect]
     Indication: IDIOPATHIC THROMBOCYTOPENIC PURPURA
     Dosage: 380 A?G, QWK
     Dates: start: 20100623, end: 20100714
  3. INSULIN GLARGINE [Concomitant]
  4. PROCRIT [Concomitant]
     Dosage: UNK UNK, UNK
     Dates: start: 20100101
  5. OXYCODONE HCL [Concomitant]
     Dosage: UNK UNK, PRN
  6. PREDNISONE [Concomitant]
  7. LEVOTHYROXINE SODIUM [Concomitant]
  8. FAMOTIDINE [Concomitant]
  9. CORTICOSTEROID NOS [Concomitant]
  10. METOPROLOL TARTRATE [Concomitant]
  11. CALCIUM ACETATE [Concomitant]

REACTIONS (14)
  - INFECTION [None]
  - DYSPNOEA [None]
  - ADVERSE DRUG REACTION [None]
  - ACUTE MYELOID LEUKAEMIA [None]
  - FLUSHING [None]
  - MUSCLE SPASMS [None]
  - MYELODYSPLASTIC SYNDROME [None]
  - TREMOR [None]
  - PRURITUS [None]
  - DRUG INEFFECTIVE [None]
  - LEUKAEMIA [None]
  - HYPERSENSITIVITY [None]
  - ANAEMIA [None]
  - SYNCOPE [None]
